FAERS Safety Report 11318496 (Version 1)
Quarter: 2015Q3

REPORT INFORMATION
  Report Type: Not Available
  Country: US (occurrence: US)
  Receive Date: 20150729
  Receipt Date: 20150729
  Transmission Date: 20151125
  Serious: No
  Sender: FDA-Public Use
  Company Number: US-LUPIN PHARMACEUTICALS INC.-E2B_00003698

PATIENT
  Age: 62 Year
  Sex: Female
  Weight: 63.56 kg

DRUGS (8)
  1. LEVETIRACETAM TABLETS USP 1000MG [Suspect]
     Active Substance: LEVETIRACETAM
     Dosage: 1 TABLET IN THE MORNING AND 2 TABLETS AT NIGHT
     Dates: start: 20150512
  2. ZONISAMIDE. [Concomitant]
     Active Substance: ZONISAMIDE
     Indication: SEIZURE
  3. VIMPAT [Concomitant]
     Active Substance: LACOSAMIDE
     Indication: SEIZURE
     Dates: start: 20141228
  4. LOSARTAN. [Concomitant]
     Active Substance: LOSARTAN
     Indication: HYPERTENSION
  5. LEVETIRACETAM TABLETS USP 1000MG [Suspect]
     Active Substance: LEVETIRACETAM
     Indication: SEIZURE
     Dosage: 2 TABLETS IN THE MORNING AND 3 TABLETS AT NIGHT
  6. LEVETIRACETAM TABLETS USP 1000MG [Suspect]
     Active Substance: LEVETIRACETAM
     Dosage: 1 TABLET IN THE MORNING AND 1 AND 1/2 TABLETS AT NIGHT
     Dates: start: 20150519
  7. METOPROLOL [Concomitant]
     Active Substance: METOPROLOL
     Indication: CARDIAC DISORDER
  8. GLIPIZIDE. [Concomitant]
     Active Substance: GLIPIZIDE
     Indication: DIABETES MELLITUS

REACTIONS (1)
  - Headache [Not Recovered/Not Resolved]

NARRATIVE: CASE EVENT DATE: 201501
